FAERS Safety Report 25852149 (Version 1)
Quarter: 2025Q3

REPORT INFORMATION
  Report Type: Spontaneous
  Country: US (occurrence: None)
  Receive Date: 20250925
  Receipt Date: 20250925
  Transmission Date: 20251021
  Serious: No
  Sender: FDA-CTU
  Company Number: None

PATIENT
  Age: 49 Year
  Sex: Female
  Weight: 69.75 kg

DRUGS (3)
  1. LINZESS [Suspect]
     Active Substance: LINACLOTIDE
     Indication: Irritable bowel syndrome
     Dosage: OTHER STRENGTH : MCG;?OTHER QUANTITY : 1 CAPSULE(S);?FREQUENCY : DAILY;?
     Route: 048
     Dates: start: 20250913
  2. ZOLOFT [Concomitant]
     Active Substance: SERTRALINE HYDROCHLORIDE
  3. Women^s 1 a day multivitamin [Concomitant]

REACTIONS (4)
  - Headache [None]
  - Paranasal sinus discomfort [None]
  - Flatulence [None]
  - Drug ineffective [None]

NARRATIVE: CASE EVENT DATE: 20250920
